FAERS Safety Report 5705061-5 (Version None)
Quarter: 2008Q2

REPORT INFORMATION
  Report Type: 
  Country: None (occurrence: None)
  Receive Date: 20080410
  Receipt Date: 20080327
  Transmission Date: 20081010
  Serious: Yes (Other)
  Sender: FDA-Public Use
  Company Number: 232955J08USA

PATIENT
  Age: 31 Year
  Sex: Female
  Weight: 77.5651 kg

DRUGS (2)
  1. REBIF [Suspect]
     Indication: MULTIPLE SCLEROSIS
     Dosage: 22 MCG, 3 IN 1 WEEKS, SUBCUTANEOUS
     Route: 058
     Dates: start: 20080303
  2. TRAMADOL HCL [Suspect]
     Indication: BACK PAIN
     Dates: start: 20071001, end: 20080323

REACTIONS (3)
  - CONVULSION [None]
  - FALL [None]
  - REFUSAL OF TREATMENT BY PATIENT [None]
